FAERS Safety Report 19638791 (Version 1)
Quarter: 2021Q3

REPORT INFORMATION
  Report Type: Spontaneous
  Country: US (occurrence: US)
  Receive Date: 20210729
  Receipt Date: 20210729
  Transmission Date: 20211014
  Serious: No
  Sender: FDA-Public Use
  Company Number: US-SA-2021SA248805

PATIENT
  Age: 59 Year
  Sex: Female

DRUGS (13)
  1. FLUOCINOLONE ACETONIDE. [Concomitant]
     Active Substance: FLUOCINOLONE ACETONIDE
  2. XOLEGEL [Concomitant]
     Active Substance: KETOCONAZOLE
  3. MUPIROCIN. [Concomitant]
     Active Substance: MUPIROCIN
  4. DUPIXENT [Suspect]
     Active Substance: DUPILUMAB
     Indication: DERMATITIS ATOPIC
     Dosage: 300 MG
     Route: 058
     Dates: start: 20210209
  5. PREDNISONE. [Concomitant]
     Active Substance: PREDNISONE
  6. COVID?19 VACCINE [Concomitant]
     Indication: COVID-19 IMMUNISATION
  7. ADDERALL [Concomitant]
     Active Substance: AMPHETAMINE ASPARTATE\AMPHETAMINE SULFATE\DEXTROAMPHETAMINE SACCHARATE\DEXTROAMPHETAMINE SULFATE
     Dosage: 5 MG
  8. HYDROXOCOBALAMIN [Concomitant]
     Active Substance: HYDROXOCOBALAMIN
  9. NAFTIN [Concomitant]
     Active Substance: NAFTIFINE HYDROCHLORIDE
  10. SYNTHROID [Concomitant]
     Active Substance: LEVOTHYROXINE SODIUM
     Dosage: UNK
  11. CLOBETASOL [Concomitant]
     Active Substance: CLOBETASOL
  12. MOBIC [Concomitant]
     Active Substance: MELOXICAM
  13. ESTRADIOL. [Concomitant]
     Active Substance: ESTRADIOL

REACTIONS (2)
  - COVID-19 [Unknown]
  - SARS-CoV-2 test positive [Unknown]
